FAERS Safety Report 10362593 (Version 3)
Quarter: 2014Q4

REPORT INFORMATION
  Report Type: Spontaneous
  Country: US (occurrence: US)
  Receive Date: 20140805
  Receipt Date: 20141112
  Transmission Date: 20150528
  Serious: No
  Sender: FDA-Public Use
  Company Number: US-PFIZER INC-2014217989

PATIENT
  Age: 72 Year
  Sex: Male

DRUGS (3)
  1. DAYPRO [Suspect]
     Active Substance: OXAPROZIN
     Indication: ARTHRITIS
     Dosage: 600 MG, TWICE A DAY
     Dates: start: 200607, end: 200608
  2. BACTRIM DS [Suspect]
     Active Substance: SULFAMETHOXAZOLE\TRIMETHOPRIM
     Indication: ANTIBIOTIC THERAPY
     Dosage: SULFAMETHOXAZOLE 800 MG/ TRIMETHOPRIM 160MG, 1X/DAY
     Dates: start: 201106, end: 201107
  3. SEPTRA [Suspect]
     Active Substance: SULFAMETHOXAZOLE\TRIMETHOPRIM
     Dosage: UNK

REACTIONS (1)
  - Drug hypersensitivity [Recovered/Resolved]

NARRATIVE: CASE EVENT DATE: 2011
